FAERS Safety Report 4688870-3 (Version None)
Quarter: 2005Q2

REPORT INFORMATION
  Report Type: 
  Country: None (occurrence: None)
  Receive Date: 20050608
  Receipt Date: 20050425
  Transmission Date: 20051028
  Serious: No
  Sender: FDA-Public Use
  Company Number: 2005-BP-07014BP

PATIENT
  Age: 70 Year
  Sex: Male

DRUGS (9)
  1. SPIRIVA [Suspect]
     Indication: CHRONIC OBSTRUCTIVE PULMONARY DISEASE
     Dosage: 18 MCG (18 MCG, QD), IH
     Route: 055
     Dates: start: 20050421
  2. SPIRIVA [Suspect]
  3. THEOPHYLLINE [Concomitant]
  4. NEXIUM [Concomitant]
  5. DARVOCET [Concomitant]
  6. PERCOCET [Concomitant]
  7. FLOVENT [Concomitant]
  8. ZOLORT (SERTRALINE HYDROCHLORIDE) [Concomitant]
  9. ACETYLSALICYLIC ACID SRT [Concomitant]

REACTIONS (1)
  - DIZZINESS [None]
